FAERS Safety Report 4575789-1 (Version None)
Quarter: 2005Q1

REPORT INFORMATION
  Report Type: 
  Country: None (occurrence: None)
  Receive Date: 20050204
  Receipt Date: 20050124
  Transmission Date: 20050727
  Serious: Yes (Disabling)
  Sender: FDA-Public Use
  Company Number: 2005014625

PATIENT
  Sex: Female

DRUGS (5)
  1. CABERGOLINE [Suspect]
     Indication: PARKINSON'S DISEASE
     Dosage: 8 MG, ORAL
     Route: 048
     Dates: start: 20000901, end: 20020101
  2. ESTROGENS (ESTROGENS) [Concomitant]
  3. MADOPAR (BENSERAZIDE HYDROCHLORIDE, LEVODOPA) [Concomitant]
  4. ACETYLSALICYLIC ACID SRT [Concomitant]
  5. ZUMESTON (DYDROGESTERONE, ESTRADIOL) [Concomitant]

REACTIONS (11)
  - AORTIC VALVE INCOMPETENCE [None]
  - BLOOD PRESSURE INCREASED [None]
  - DYSPNOEA [None]
  - DYSPNOEA EXERTIONAL [None]
  - FACE OEDEMA [None]
  - HISTOLOGY ABNORMAL [None]
  - MITRAL VALVE DISEASE [None]
  - MITRAL VALVE INCOMPETENCE [None]
  - MITRAL VALVE PROLAPSE [None]
  - NOCTURIA [None]
  - OEDEMA PERIPHERAL [None]
